FAERS Safety Report 24576334 (Version 1)
Quarter: 2024Q4

REPORT INFORMATION
  Report Type: Spontaneous
  Country: GB (occurrence: GB)
  Receive Date: 20241104
  Receipt Date: 20241104
  Transmission Date: 20250115
  Serious: Yes (Other)
  Sender: JOHNSON AND JOHNSON
  Company Number: GB-MHRA-TPP24541319C19636246YC1730384814485

PATIENT
  Age: 57 Year
  Sex: Female
  Weight: 167 kg

DRUGS (11)
  1. TOPAMAX [Suspect]
     Active Substance: TOPIRAMATE
     Indication: Atypical migraine
     Route: 065
     Dates: start: 20241031
  2. NAPROXEN [Concomitant]
     Active Substance: NAPROXEN
     Indication: Ill-defined disorder
     Dosage: TAKE ONE TWICE DAILY (FOR OCCASIONAL USE)
     Dates: start: 20240819, end: 20240902
  3. SENNA LEAF [Concomitant]
     Active Substance: SENNA LEAF
     Indication: Ill-defined disorder
     Dosage: ONE AT NIGHT
     Dates: start: 20241031
  4. ASPIRIN [Concomitant]
     Active Substance: ASPIRIN
     Indication: Ill-defined disorder
     Dosage: ONE TO BE TAKEN EVERY DAY
     Dates: start: 20230918
  5. ATORVASTATIN [Concomitant]
     Active Substance: ATORVASTATIN
     Indication: Ill-defined disorder
     Dosage: ONE TO BE TAKEN EVERY DAY
     Dates: start: 20230918
  6. POLYETHYLENE GLYCOL 3350\POTASSIUM CHLORIDE\SODIUM BICARBONATE\SODIUM [Concomitant]
     Active Substance: POLYETHYLENE GLYCOL 3350\POTASSIUM CHLORIDE\SODIUM BICARBONATE\SODIUM CHLORIDE
     Indication: Ill-defined disorder
     Dosage: 1 TO BE TAKEN TWICE DAILY
     Dates: start: 20231006
  7. OMEPRAZOLE [Concomitant]
     Active Substance: OMEPRAZOLE
     Indication: Ill-defined disorder
     Dosage: EVERY DAY
     Dates: start: 20231108
  8. DOCUSATE SODIUM [Concomitant]
     Active Substance: DOCUSATE SODIUM
     Indication: Ill-defined disorder
     Dosage: TAKE ONE  CAPSULE BETWEEN 1 AND 5 TIMES/DAY
     Dates: start: 20240111
  9. BISACODYL [Concomitant]
     Active Substance: BISACODYL
     Indication: Ill-defined disorder
     Dosage: INSERT ONE WITH A GLYCERINE SUPPOSITORY AS NEEDED
     Dates: start: 20240301
  10. GLYCERIN [Concomitant]
     Active Substance: GLYCERIN
     Indication: Ill-defined disorder
     Dosage: INSERT ONE OR TWO AS NEEDED
     Dates: start: 20240301
  11. HYDROXOCOBALAMIN [Concomitant]
     Active Substance: HYDROXOCOBALAMIN
     Indication: Ill-defined disorder
     Dosage: 1MG EVERY 3M IM
     Dates: start: 20240529

REACTIONS (1)
  - Depression suicidal [Recovering/Resolving]

NARRATIVE: CASE EVENT DATE: 20241031
